FAERS Safety Report 24010460 (Version 2)
Quarter: 2024Q2

REPORT INFORMATION
  Report Type: Spontaneous
  Country: GR (occurrence: GR)
  Receive Date: 20240625
  Receipt Date: 20240628
  Transmission Date: 20240715
  Serious: Yes (Hospitalization)
  Sender: FDA-Public Use
  Company Number: GR-BoehringerIngelheim-2024-BI-033953

PATIENT
  Age: 67 Year
  Sex: Female

DRUGS (1)
  1. ALTEPLASE [Suspect]
     Active Substance: ALTEPLASE
     Indication: Myocardial infarction
     Route: 065

REACTIONS (3)
  - Ventricular fibrillation [Recovered/Resolved]
  - Drug ineffective [Unknown]
  - Chest pain [Recovered/Resolved]
